FAERS Safety Report 10533149 (Version 1)
Quarter: 2014Q4

REPORT INFORMATION
  Report Type: Spontaneous
  Country: US (occurrence: US)
  Receive Date: 20141022
  Receipt Date: 20141022
  Transmission Date: 20150529
  Serious: No
  Sender: FDA-Public Use
  Company Number: US-ASTRAZENECA-2014SE77335

PATIENT
  Age: 433 Month
  Sex: Female
  Weight: 90.7 kg

DRUGS (5)
  1. ZYRTEC [Concomitant]
     Active Substance: CETIRIZINE HYDROCHLORIDE
     Indication: ASTHMA
     Route: 048
  2. CITRNATAL B CALL [Concomitant]
     Indication: VITAMIN SUPPLEMENTATION
     Dosage: 1 THREE TIMES A DAY
     Route: 048
     Dates: start: 201404
  3. PULMICORT FLEXHALER [Suspect]
     Active Substance: BUDESONIDE
     Indication: ASTHMA
     Route: 055
     Dates: start: 201010
  4. PROVENTIL [Concomitant]
     Active Substance: ALBUTEROL
     Indication: ASTHMA
     Dosage: 2 AS REQUIRED
     Route: 055
  5. SINGULAIR [Concomitant]
     Active Substance: MONTELUKAST SODIUM
     Indication: ASTHMA
     Route: 048

REACTIONS (3)
  - Exposure during pregnancy [Unknown]
  - Secretion discharge [Unknown]
  - Device misuse [Recovered/Resolved]

NARRATIVE: CASE EVENT DATE: 201404
